FAERS Safety Report 6092583-3 (Version None)
Quarter: 2009Q1

REPORT INFORMATION
  Report Type: 
  Country: None (occurrence: None)
  Receive Date: 20090225
  Receipt Date: 20080303
  Transmission Date: 20090719
  Serious: No
  Sender: FDA-Public Use
  Company Number: US-BRISTOL-MYERS SQUIBB COMPANY-14098727

PATIENT
  Age: 44 Year
  Sex: Female
  Weight: 45 kg

DRUGS (1)
  1. KENALOG [Suspect]
     Indication: BRONCHITIS
     Dates: start: 20080129

REACTIONS (2)
  - BLOOD CORTISOL DECREASED [None]
  - MENSTRUATION IRREGULAR [None]
